FAERS Safety Report 17685138 (Version 3)
Quarter: 2022Q3

REPORT INFORMATION
  Report Type: Report from Study
  Country: CA (occurrence: CA)
  Receive Date: 20200420
  Receipt Date: 20220809
  Transmission Date: 20221026
  Serious: Yes (Hospitalization, Other)
  Sender: FDA-Public Use
  Company Number: CA-JNJFOC-20200412939

PATIENT
  Age: 74 Year
  Sex: Male
  Weight: 91.4 kg

DRUGS (14)
  1. ABIRATERONE ACETATE [Suspect]
     Active Substance: ABIRATERONE ACETATE
     Indication: Hormone-refractory prostate cancer
     Route: 048
     Dates: start: 20200314, end: 20200406
  2. ABIRATERONE ACETATE [Suspect]
     Active Substance: ABIRATERONE ACETATE
     Indication: Prostate cancer
  3. ABIRATERONE ACETATE [Suspect]
     Active Substance: ABIRATERONE ACETATE
     Indication: Prostate cancer metastatic
  4. ROSUVASTATIN [Concomitant]
     Active Substance: ROSUVASTATIN
     Indication: Hyperlipidaemia
     Dates: start: 201311
  5. TYLENOL                            /00020001/ [Concomitant]
     Indication: Pain
     Dosage: DOSE 500-1000 MG EVERY 6 HOURS AS NEEDED
     Dates: start: 202001
  6. ASPIRIN [Concomitant]
     Active Substance: ASPIRIN
     Indication: Coronary artery disease
     Dates: start: 2013
  7. DUTASTERIDE [Concomitant]
     Active Substance: DUTASTERIDE
     Indication: Nocturia
     Dates: start: 201202
  8. FERROUS FUMARATE [Concomitant]
     Active Substance: FERROUS FUMARATE
     Indication: Anaemia
     Dates: start: 201803
  9. KENALOG [Concomitant]
     Active Substance: TRIAMCINOLONE ACETONIDE
     Dates: start: 202001
  10. METOPROLOL [Concomitant]
     Active Substance: METOPROLOL
     Indication: Hypertension
     Dates: start: 2015
  11. NAPROXEN [Concomitant]
     Active Substance: NAPROXEN
     Dates: start: 202001
  12. OXYCODONE/APAP                     /01601701/ [Concomitant]
     Indication: Arthritis
     Dates: start: 201912
  13. PANTOPRAZOLE [Concomitant]
     Active Substance: PANTOPRAZOLE
     Indication: Gastrooesophageal reflux disease
     Dates: start: 2012
  14. LEUPROLIDE                         /00726901/ [Concomitant]
     Route: 030

REACTIONS (2)
  - Chest pain [Not Recovered/Not Resolved]
  - Asthenia [Not Recovered/Not Resolved]

NARRATIVE: CASE EVENT DATE: 20200403
